FAERS Safety Report 7373726-8 (Version None)
Quarter: 2011Q1

REPORT INFORMATION
  Report Type: 
  Country: None (occurrence: None)
  Receive Date: 20110325
  Receipt Date: 20110310
  Transmission Date: 20110831
  Serious: Yes (Other)
  Sender: FDA-Public Use
  Company Number: GB-JNJFOC-20110302383

PATIENT
  Age: 2 Year
  Sex: Female

DRUGS (2)
  1. CALPOL INFANT SUSPENSION [Suspect]
     Route: 048
  2. CALPOL INFANT SUSPENSION [Suspect]
     Indication: ACCIDENTAL EXPOSURE
     Dosage: AT LEAST 75 MILLILITERS
     Route: 048

REACTIONS (2)
  - DIARRHOEA [None]
  - ACCIDENTAL OVERDOSE [None]
